FAERS Safety Report 7215225-X (Version None)
Quarter: 2011Q1

REPORT INFORMATION
  Report Type: 
  Country: None (occurrence: None)
  Receive Date: 20110107
  Receipt Date: 20101109
  Transmission Date: 20110831
  Serious: No
  Sender: FDA-Public Use
  Company Number: A0891407A

PATIENT
  Age: 31 Year
  Sex: Male

DRUGS (2)
  1. LOVAZA [Suspect]
     Indication: BLOOD CHOLESTEROL INCREASED
     Dosage: 1CAP TWICE PER DAY
     Route: 048
     Dates: start: 20070101
  2. LEVOXYL [Concomitant]

REACTIONS (2)
  - HEADACHE [None]
  - VISION BLURRED [None]
